FAERS Safety Report 24275350 (Version 1)
Quarter: 2024Q3

REPORT INFORMATION
  Report Type: Spontaneous
  Country: SE (occurrence: SE)
  Receive Date: 20240903
  Receipt Date: 20240903
  Transmission Date: 20241016
  Serious: Yes (Other)
  Sender: NOVO NORDISK
  Company Number: None

PATIENT
  Age: 50 Year
  Sex: Female
  Weight: 85 kg

DRUGS (1)
  1. SAXENDA [Suspect]
     Active Substance: LIRAGLUTIDE
     Indication: Obesity
     Dosage: UNK (DAILY WITH A DOSE THAT IS INCREASED SUCCESSIVELY ACCORDING TO STANDARD PLAN)
     Route: 058
     Dates: start: 20220715, end: 20230201

REACTIONS (1)
  - Graves^ disease [Recovering/Resolving]

NARRATIVE: CASE EVENT DATE: 20230101
